FAERS Safety Report 8763895 (Version 1)
Quarter: 2012Q4

REPORT INFORMATION
  Report Type: 
  Country: US (occurrence: US)
  Receive Date: 20120828
  Receipt Date: 20120828
  Transmission Date: 20130627
  Serious: Yes (Hospitalization)
  Sender: FDA-Public Use
  Company Number: US-ELI_LILLY_AND_COMPANY-US201109002531

PATIENT
  Age: 94 Year
  Sex: Male

DRUGS (1)
  1. FORTEO [Suspect]
     Indication: OSTEOPOROSIS
     Dosage: 20 ug, qd
     Route: 058
     Dates: start: 201108

REACTIONS (6)
  - Bronchitis [Unknown]
  - Pneumonia [Unknown]
  - Cough [Unknown]
  - Fatigue [Unknown]
  - Fall [Unknown]
  - Injection site bruising [Unknown]
